FAERS Safety Report 22192815 (Version 1)
Quarter: 2023Q2

REPORT INFORMATION
  Report Type: Spontaneous
  Country: CA (occurrence: None)
  Receive Date: 20230410
  Receipt Date: 20230410
  Transmission Date: 20230721
  Serious: Yes (Life-Threatening)
  Sender: FDA-Public Use
  Company Number: 2023A082606

PATIENT
  Sex: Female
  Weight: 3 kg

DRUGS (4)
  1. QUETIAPINE [Suspect]
     Active Substance: QUETIAPINE
     Indication: Depression
     Dosage: 300.0MG ONCE/SINGLE ADMINISTRATION
     Route: 048
  2. BUPROPION [Suspect]
     Active Substance: BUPROPION
     Indication: Depression
     Dosage: 450.0MG ONCE/SINGLE ADMINISTRATION
     Route: 048
  3. SERTRALINE [Suspect]
     Active Substance: SERTRALINE HYDROCHLORIDE
     Indication: Depression
     Dosage: 200.0MG ONCE/SINGLE ADMINISTRATION
     Route: 048
  4. FETZIMA [Suspect]
     Active Substance: LEVOMILNACIPRAN HYDROCHLORIDE
     Indication: Depression
     Dosage: 120.0MG ONCE/SINGLE ADMINISTRATION
     Route: 048

REACTIONS (6)
  - Foetal exposure during pregnancy [Recovered/Resolved]
  - Encephalopathy [Recovered/Resolved]
  - Thrombosis [Recovered/Resolved]
  - Hypertonia [Recovered/Resolved]
  - Seizure [Recovered/Resolved]
  - Positive airway pressure therapy [Recovered/Resolved]
